FAERS Safety Report 13044585 (Version 1)
Quarter: 2016Q4

REPORT INFORMATION
  Report Type: Spontaneous
  Country: US (occurrence: US)
  Receive Date: 20161220
  Receipt Date: 20161220
  Transmission Date: 20170207
  Serious: No
  Sender: FDA-Public Use
  Company Number: US-ROCHE-1049773

PATIENT
  Sex: Female
  Weight: 65.1 kg

DRUGS (2)
  1. ZELBORAF [Suspect]
     Active Substance: VEMURAFENIB
     Indication: MALIGNANT MELANOMA
     Route: 048
     Dates: start: 20120214
  2. ZELBORAF [Suspect]
     Active Substance: VEMURAFENIB
     Route: 048

REACTIONS (18)
  - Pyrexia [Unknown]
  - Decreased appetite [Unknown]
  - Alopecia [Unknown]
  - Nausea [Unknown]
  - Diarrhoea [Unknown]
  - Visual impairment [Unknown]
  - Liver function test increased [Recovered/Resolved]
  - Rash [Unknown]
  - Fatigue [Unknown]
  - Arthralgia [Unknown]
  - Blister [Unknown]
  - Dyspepsia [Unknown]
  - Peripheral swelling [Unknown]
  - Asthenia [Unknown]
  - Mass [Unknown]
  - Constipation [Unknown]
  - Pruritus [Unknown]
  - Chills [Unknown]
